FAERS Safety Report 5712078-3 (Version None)
Quarter: 2008Q2

REPORT INFORMATION
  Report Type: 
  Country: None (occurrence: None)
  Receive Date: 20080418
  Receipt Date: 20080407
  Transmission Date: 20081010
  Serious: Yes (Other)
  Sender: FDA-Public Use
  Company Number: TPA2008A00451

PATIENT
  Age: 55 Year
  Sex: Female
  Weight: 63.5036 kg

DRUGS (12)
  1. ROZEREM [Suspect]
     Indication: INSOMNIA
     Dosage: SEE IMAGE
     Route: 048
     Dates: start: 20080101, end: 20080101
  2. ROZEREM [Suspect]
     Indication: INSOMNIA
     Dosage: SEE IMAGE
     Route: 048
     Dates: start: 20080101, end: 20080101
  3. ROZEREM [Suspect]
     Indication: INSOMNIA
     Dosage: SEE IMAGE
     Route: 048
     Dates: start: 20080101, end: 20080101
  4. ROZEREM [Suspect]
     Indication: INSOMNIA
     Dosage: SEE IMAGE
     Route: 048
     Dates: start: 20080101, end: 20080101
  5. ROZEREM [Suspect]
     Indication: INSOMNIA
     Dosage: SEE IMAGE
     Route: 048
     Dates: start: 20080101
  6. ROZEREM [Suspect]
     Indication: INSOMNIA
     Dosage: SEE IMAGE
     Route: 048
     Dates: start: 20080101
  7. XANAX [Suspect]
     Indication: ANXIETY
     Dosage: ONCE, PER ORAL; 4 MG, ONCE, PER ORAL; 1 MG, UP TO 3 IN 1 D, PER ORAL
     Route: 048
     Dates: start: 20080101, end: 20080101
  8. XANAX [Suspect]
     Indication: ANXIETY
     Dosage: ONCE, PER ORAL; 4 MG, ONCE, PER ORAL; 1 MG, UP TO 3 IN 1 D, PER ORAL
     Route: 048
     Dates: start: 20080101, end: 20080101
  9. UNSPECIFIED MEDICATION (ALL OTHER NON-THERAPEUTIC PRODUCTS) [Suspect]
     Dosage: PER ORAL
     Route: 048
  10. SYNTHROID [Concomitant]
  11. LAMICTAL [Concomitant]
  12. TOPAMAX [Concomitant]

REACTIONS (4)
  - INCONTINENCE [None]
  - MULTIPLE DRUG OVERDOSE [None]
  - SELF-MEDICATION [None]
  - SLEEP DISORDER [None]
